FAERS Safety Report 6233260-5 (Version None)
Quarter: 2009Q2

REPORT INFORMATION
  Report Type: 
  Country: None (occurrence: None)
  Receive Date: 20090617
  Receipt Date: 20090611
  Transmission Date: 20091009
  Serious: Yes (Other)
  Sender: FDA-Public Use
  Company Number: AU-AVENTIS-200913306EU

PATIENT
  Age: 78 Year
  Sex: Male

DRUGS (6)
  1. LASIX [Suspect]
  2. TRITACE [Suspect]
  3. NATRILIX-SR [Suspect]
  4. WARFARIN SODIUM [Suspect]
     Dosage: DOSE: UNK
  5. SIMVAR [Suspect]
     Dosage: DOSE: UNK
  6. ASPIRIN [Suspect]

REACTIONS (2)
  - DRUG INEFFECTIVE [None]
  - HYPERTENSION [None]
